FAERS Safety Report 5743838-0 (Version None)
Quarter: 2008Q2

REPORT INFORMATION
  Report Type: 
  Country: None (occurrence: None)
  Receive Date: 20080516
  Receipt Date: 20080506
  Transmission Date: 20081010
  Serious: Yes (Hospitalization, Other)
  Sender: FDA-Public Use
  Company Number: ADE2008-0176

PATIENT
  Sex: Female

DRUGS (5)
  1. GABAPENTIN [Suspect]
     Indication: NEURALGIA
     Dosage: 600MG
  2. HYPERICUM [Suspect]
  3. ACETAMINOPHEN [Suspect]
     Dosage: 500 MG
  4. PETHIDINE [Suspect]
     Dosage: 3 DOSES-IV
     Route: 042
  5. TRAMADOL HCL [Suspect]
     Dosage: PO
     Route: 048

REACTIONS (7)
  - CONFUSIONAL STATE [None]
  - HALLUCINATION, VISUAL [None]
  - LOWER LIMB FRACTURE [None]
  - PYREXIA [None]
  - ROAD TRAFFIC ACCIDENT [None]
  - SEROTONIN SYNDROME [None]
  - TREMOR [None]
